FAERS Safety Report 8533762-2 (Version None)
Quarter: 2012Q3

REPORT INFORMATION
  Report Type: 
  Country: None (occurrence: None)
  Receive Date: 20120711
  Receipt Date: 20120702
  Transmission Date: 20120928
  Serious: Yes (Other)
  Sender: FDA-Public Use
  Company Number: 1202-092

PATIENT
  Age: 73 Year
  Sex: Female

DRUGS (12)
  1. MULTIVITAMIN [Concomitant]
  2. SERTRALINE HYDROCHLORIDE [Concomitant]
  3. EYLEA [Suspect]
     Indication: AGE-RELATED MACULAR DEGENERATION
     Dosage: 2 MG, INTRAVITREAL
     Dates: start: 20120208
  4. PRESERVISION (OCUVITE /01762701/) [Concomitant]
  5. POTASSIUM (POTASSIUM) [Concomitant]
  6. TRAZODONE HCL [Concomitant]
  7. VICODIN [Concomitant]
  8. MIRALAX [Concomitant]
  9. AMLODIPINE [Concomitant]
  10. ASPIRIN [Concomitant]
  11. LOVAZA [Concomitant]
  12. METOPROLOL TARTRATE [Concomitant]

REACTIONS (4)
  - UVEITIS [None]
  - PAIN [None]
  - ANTERIOR CHAMBER FLARE [None]
  - DETACHMENT OF RETINAL PIGMENT EPITHELIUM [None]
